FAERS Safety Report 9931022 (Version 2)
Quarter: 2014Q1

REPORT INFORMATION
  Report Type: Spontaneous
  Country: SE (occurrence: SE)
  Receive Date: 20140227
  Receipt Date: 20140227
  Transmission Date: 20141002
  Serious: Yes (Other)
  Sender: FDA-Public Use
  Company Number: SE-ABBVIE-13X-150-1130985-00

PATIENT
  Sex: Male

DRUGS (1)
  1. ERGENYL [Suspect]
     Indication: EPILEPSY
     Dosage: UNKNOWN;UNKNOWN
     Dates: end: 20130312

REACTIONS (4)
  - Dementia [Unknown]
  - Rhinorrhoea [Unknown]
  - Thyroid disorder [Unknown]
  - Parkinsonism [Unknown]
